FAERS Safety Report 4453164-8 (Version None)
Quarter: 2004Q3

REPORT INFORMATION
  Report Type: 
  Country: None (occurrence: None)
  Receive Date: 20040901
  Receipt Date: 20040720
  Transmission Date: 20050211
  Serious: Yes (Death, Hospitalization)
  Sender: FDA-Public Use
  Company Number: US084137

PATIENT
  Age: 76 Year
  Sex: Female

DRUGS (7)
  1. ENBREL [Suspect]
     Indication: RHEUMATOID ARTHRITIS
     Dosage: 25 MG, 2 IN 1 WEEKS, SC
     Route: 058
     Dates: start: 19970301, end: 20040703
  2. METHOTREXATE [Concomitant]
  3. PREDNISONE [Concomitant]
  4. DONEPEZIL HCL [Concomitant]
  5. SIMVASTATIN [Concomitant]
  6. GLIPIZIDE [Concomitant]
  7. ALBUTEROL SULFATE [Concomitant]

REACTIONS (1)
  - PNEUMONIA [None]
